FAERS Safety Report 4875624-8 (Version None)
Quarter: 2006Q1

REPORT INFORMATION
  Report Type: 
  Country: None (occurrence: None)
  Receive Date: 20060105
  Receipt Date: 20051219
  Transmission Date: 20060701
  Serious: Yes (Hospitalization)
  Sender: FDA-Public Use
  Company Number: 2006000910

PATIENT
  Age: 37 Year
  Sex: Female
  Weight: 65 kg

DRUGS (1)
  1. XANAX [Suspect]
     Indication: ILL-DEFINED DISORDER
     Dosage: 1 MG (0.5 MG, 2 IN 1 D), ORAL
     Route: 048
     Dates: start: 20020301

REACTIONS (7)
  - AGGRESSION [None]
  - ALCOHOLISM [None]
  - AMNESIA [None]
  - ANHEDONIA [None]
  - LISTLESS [None]
  - PARENT-CHILD PROBLEM [None]
  - WEIGHT INCREASED [None]
